FAERS Safety Report 13162932 (Version 1)
Quarter: 2017Q1

REPORT INFORMATION
  Report Type: Spontaneous
  Country: US (occurrence: US)
  Receive Date: 20170130
  Receipt Date: 20170130
  Transmission Date: 20170428
  Serious: No
  Sender: FDA-Public Use
  Company Number: None

PATIENT
  Age: 69 Year
  Sex: Male
  Weight: 113.4 kg

DRUGS (1)
  1. IPRATROPIUM BROMIDE AND ALBUTEROL INHALATION SOLUTION RITE DOSE [Suspect]
     Active Substance: ALBUTEROL SULFATE\IPRATROPIUM BROMIDE
     Indication: CHRONIC OBSTRUCTIVE PULMONARY DISEASE
     Dosage: STRENGTH - .05MG/3MG/3ML
     Route: 055

REACTIONS (2)
  - Rash [None]
  - Peripheral swelling [None]
